FAERS Safety Report 14007633 (Version 1)
Quarter: 2017Q3

REPORT INFORMATION
  Report Type: Spontaneous
  Country: US (occurrence: None)
  Receive Date: 20170924
  Receipt Date: 20170924
  Transmission Date: 20171128
  Serious: No
  Sender: FDA-Public Use
  Company Number: None

PATIENT
  Age: 50 Year
  Sex: Male

DRUGS (1)
  1. DOFETILIDE 0.5MG MAYNE PHARMA [Suspect]
     Active Substance: DOFETILIDE
     Route: 048
     Dates: start: 20170829, end: 20170918

REACTIONS (4)
  - Hyperhidrosis [None]
  - Paraesthesia [None]
  - Night sweats [None]
  - Hypoaesthesia [None]

NARRATIVE: CASE EVENT DATE: 20170829
